FAERS Safety Report 8005657-4 (Version None)
Quarter: 2011Q4

REPORT INFORMATION
  Report Type: 
  Country: None (occurrence: None)
  Receive Date: 20111223
  Receipt Date: 20111220
  Transmission Date: 20120403
  Serious: Yes (Other)
  Sender: FDA-Public Use
  Company Number: CHPA2011CA018396

PATIENT
  Sex: Male

DRUGS (1)
  1. OTRIVIN [Suspect]
     Indication: SINUS CONGESTION
     Dosage: UNK, UNK
     Route: 045
     Dates: end: 20111201

REACTIONS (2)
  - SLEEP APNOEA SYNDROME [None]
  - EMPHYSEMA [None]
